FAERS Safety Report 10037450 (Version 1)
Quarter: 2014Q1

REPORT INFORMATION
  Report Type: Spontaneous
  Country: US (occurrence: None)
  Receive Date: 20140325
  Receipt Date: 20140325
  Transmission Date: 20141002
  Serious: Yes (Life-Threatening, Hospitalization, Other)
  Sender: FDA-Public Use
  Company Number: None

PATIENT
  Age: 30 Year
  Sex: Female
  Weight: 90.72 kg

DRUGS (6)
  1. XARELTO [Suspect]
     Indication: ATRIAL FIBRILLATION
     Dosage: 20 MG TABLET?ONE TABLET?1 PILL @ DINNER?MOUTH
     Route: 048
     Dates: start: 20130913, end: 201311
  2. ASPIRIN [Concomitant]
  3. PROPRONOLOL [Concomitant]
  4. OMEPRAZOLE [Concomitant]
  5. VITAMIN C [Concomitant]
  6. TYLENOL [Concomitant]

REACTIONS (10)
  - Gastroenteritis viral [None]
  - Haemorrhage [None]
  - Pallor [None]
  - Balance disorder [None]
  - Confusional state [None]
  - Blood pressure abnormal [None]
  - Heart rate abnormal [None]
  - Dizziness [None]
  - Nausea [None]
  - Vomiting [None]
